FAERS Safety Report 5578734-5 (Version None)
Quarter: 2007Q4

REPORT INFORMATION
  Report Type: 
  Country: None (occurrence: None)
  Receive Date: 20071227
  Receipt Date: 20071210
  Transmission Date: 20080405
  Serious: Yes (Hospitalization)
  Sender: FDA-Public Use
  Company Number: 002#8#2007-00385

PATIENT
  Age: 72 Year
  Sex: Male

DRUGS (6)
  1. NITROGLYCERIN-TRANSDERMAL-SYSTEM (GLYCERYL TRINITRATE) [Suspect]
     Indication: PRINZMETAL ANGINA
  2. NIFEDIPINE [Suspect]
     Indication: PRINZMETAL ANGINA
     Dosage: 40 MG
  3. DILTIAZEM [Suspect]
     Indication: PRINZMETAL ANGINA
     Dosage: 400 MG
  4. NICORANDIL [Suspect]
     Indication: PRINZMETAL ANGINA
     Dosage: 15MG
  5. DOXAZOSIN [Suspect]
     Indication: PRINZMETAL ANGINA
     Dosage: 4 MG
  6. , [Concomitant]

REACTIONS (2)
  - NO THERAPEUTIC RESPONSE [None]
  - SKIN REACTION [None]
